FAERS Safety Report 14803295 (Version 5)
Quarter: 2018Q3

REPORT INFORMATION
  Report Type: Report from Study
  Country: DE (occurrence: DE)
  Receive Date: 20180425
  Receipt Date: 20180917
  Transmission Date: 20181010
  Serious: Yes (Hospitalization)
  Sender: FDA-Public Use
  Company Number: DE-ROCHE-2112862

PATIENT
  Age: 54 Year
  Sex: Male
  Weight: 63 kg

DRUGS (8)
  1. VENETOCLAX. [Suspect]
     Active Substance: VENETOCLAX
     Indication: CHRONIC LYMPHOCYTIC LEUKAEMIA
     Dosage: CYCLE 1 (LAST 7 DAYS 20 MG DAILY; AS PER PROTOCOL)?DATE OF LAST DOSE 100 MG PRIOR TO SAE: 21/APR/201
     Route: 048
     Dates: start: 20180405
  2. IBRUTINIB [Suspect]
     Active Substance: IBRUTINIB
     Indication: CHRONIC LYMPHOCYTIC LEUKAEMIA
     Dosage: CYCLE 1?15 (420 MG DAILY) ?DATE OF LAST DOSE 560 MG PRIOR TO SAE: 21/APR/2018?01/SEP/2018, RECENT DO
     Route: 048
     Dates: start: 20180315
  3. CEFUROXIME. [Concomitant]
     Active Substance: CEFUROXIME
     Route: 048
     Dates: start: 20180623
  4. OBINUTUZUMAB. [Suspect]
     Active Substance: OBINUTUZUMAB
     Indication: CHRONIC LYMPHOCYTIC LEUKAEMIA
     Dosage: CYCLE 1 (3000 MG), CYCLE 2?6 (1000 MG) ?DATE OF LAST DOSE 1000 MG PRIOR TO SAE: 13/APR/2018?05/JUL/2
     Route: 042
     Dates: start: 20180315
  5. ALLOPURINOL. [Concomitant]
     Active Substance: ALLOPURINOL
     Route: 048
     Dates: start: 20180315
  6. PANTOZOL [Concomitant]
     Active Substance: PANTOPRAZOLE SODIUM
     Route: 048
     Dates: start: 20180329
  7. RINGER LOCKE [Concomitant]
     Route: 065
     Dates: start: 20180315
  8. COTRIM FORTE [Concomitant]
     Active Substance: SULFAMETHOXAZOLE\TRIMETHOPRIM
     Route: 048
     Dates: start: 20180315

REACTIONS (3)
  - Bladder neoplasm [Recovered/Resolved]
  - Pyelonephritis [Recovered/Resolved]
  - Urinary tract infection [Recovered/Resolved]

NARRATIVE: CASE EVENT DATE: 20180422
